FAERS Safety Report 10464336 (Version 11)
Quarter: 2015Q2

REPORT INFORMATION
  Report Type: Report from Study
  Country: US (occurrence: US)
  Receive Date: 20140919
  Receipt Date: 20150514
  Transmission Date: 20150821
  Serious: Yes (Hospitalization, Other)
  Sender: FDA-Public Use
  Company Number: US-SANOFI-AVENTIS-2013SA074289

PATIENT
  Age: 62 Year
  Sex: Female

DRUGS (8)
  1. AUBAGIO [Suspect]
     Active Substance: TERIFLUNOMIDE
     Indication: MULTIPLE SCLEROSIS
     Route: 048
     Dates: start: 20140523, end: 20140818
  2. AUBAGIO [Suspect]
     Active Substance: TERIFLUNOMIDE
     Indication: MULTIPLE SCLEROSIS
     Route: 048
  3. AUBAGIO [Suspect]
     Active Substance: TERIFLUNOMIDE
     Indication: MULTIPLE SCLEROSIS
     Route: 048
     Dates: start: 20140919, end: 20141213
  4. OPANA ER [Concomitant]
     Active Substance: OXYMORPHONE HYDROCHLORIDE
     Indication: FIBROMYALGIA
  5. XANAX [Suspect]
     Active Substance: ALPRAZOLAM
     Route: 065
  6. AUBAGIO [Suspect]
     Active Substance: TERIFLUNOMIDE
     Indication: MULTIPLE SCLEROSIS
     Route: 048
     Dates: start: 20130620
  7. AUBAGIO [Suspect]
     Active Substance: TERIFLUNOMIDE
     Indication: MULTIPLE SCLEROSIS
     Dosage: DOSE- 14
     Route: 048
     Dates: start: 20131004, end: 20140203
  8. OPANA ER [Concomitant]
     Active Substance: OXYMORPHONE HYDROCHLORIDE
     Indication: PAIN

REACTIONS (38)
  - Leukopenia [Unknown]
  - Pruritus [Not Recovered/Not Resolved]
  - Laboratory test abnormal [Unknown]
  - Diarrhoea [Recovered/Resolved]
  - Weight decreased [Recovering/Resolving]
  - Multiple sclerosis relapse [Unknown]
  - Anaemia [Not Recovered/Not Resolved]
  - Insomnia [Unknown]
  - Feeling abnormal [Unknown]
  - Constipation [Not Recovered/Not Resolved]
  - Alopecia [Not Recovered/Not Resolved]
  - Pain [Not Recovered/Not Resolved]
  - Eating disorder [Unknown]
  - Constipation [Unknown]
  - Abdominal pain lower [Unknown]
  - Leukocytosis [Unknown]
  - Burning sensation [Unknown]
  - Stress [Not Recovered/Not Resolved]
  - Haemoglobin decreased [Not Recovered/Not Resolved]
  - Arthritis [Not Recovered/Not Resolved]
  - Dysphagia [Unknown]
  - Dysgraphia [Unknown]
  - Grip strength decreased [Unknown]
  - Confusional state [Unknown]
  - Headache [Unknown]
  - Unevaluable event [Unknown]
  - Dry skin [Not Recovered/Not Resolved]
  - Thrombocytopenia [Unknown]
  - Blood test abnormal [Not Recovered/Not Resolved]
  - Abdominal discomfort [Unknown]
  - Intestinal obstruction [Not Recovered/Not Resolved]
  - Memory impairment [Not Recovered/Not Resolved]
  - Tremor [Not Recovered/Not Resolved]
  - Drug hypersensitivity [Unknown]
  - Fatigue [Not Recovered/Not Resolved]
  - Chest pain [Unknown]
  - Abdominal pain upper [Unknown]
  - Paraesthesia [Unknown]
